FAERS Safety Report 13581796 (Version 1)
Quarter: 2017Q2

REPORT INFORMATION
  Report Type: Report from Study
  Country: CO (occurrence: CO)
  Receive Date: 20170525
  Receipt Date: 20170525
  Transmission Date: 20170830
  Serious: Yes (Hospitalization)
  Sender: FDA-Public Use
  Company Number: CO-JNJFOC-20170413500

PATIENT
  Age: 57 Year
  Sex: Female
  Weight: 67 kg

DRUGS (3)
  1. SIMPONI [Suspect]
     Active Substance: GOLIMUMAB
     Indication: SPONDYLOARTHROPATHY
     Route: 058
     Dates: start: 20140705
  2. SULFASALAZINE. [Concomitant]
     Active Substance: SULFASALAZINE
     Route: 065
  3. LANSOPRAZOLE. [Concomitant]
     Active Substance: LANSOPRAZOLE
     Route: 065

REACTIONS (5)
  - Nasal inflammation [Recovering/Resolving]
  - Gastrointestinal infection [Recovering/Resolving]
  - Hypertension [Unknown]
  - Cough [Not Recovered/Not Resolved]
  - Rhinitis [Recovering/Resolving]

NARRATIVE: CASE EVENT DATE: 20160818
